FAERS Safety Report 6825833-3 (Version None)
Quarter: 2010Q3

REPORT INFORMATION
  Report Type: 
  Country: None (occurrence: None)
  Receive Date: 20100708
  Receipt Date: 20100708
  Transmission Date: 20110219
  Serious: Yes (Hospitalization)
  Sender: FDA-Public Use
  Company Number: None

PATIENT
  Sex: Female
  Weight: 46.2669 kg

DRUGS (2)
  1. LOVENOX [Suspect]
     Indication: DEEP VEIN THROMBOSIS
     Dosage: 75MG SQ 80MG SQ
     Route: 058
     Dates: start: 20100608
  2. LOVENOX [Suspect]
     Indication: DEEP VEIN THROMBOSIS
     Dosage: 75MG SQ 80MG SQ
     Route: 058
     Dates: start: 20100609

REACTIONS (2)
  - HAEMATOMA [None]
  - WOUND DRAINAGE [None]
